FAERS Safety Report 7486677-5 (Version None)
Quarter: 2011Q2

REPORT INFORMATION
  Report Type: 
  Country: None (occurrence: None)
  Receive Date: 20110517
  Receipt Date: 20110510
  Transmission Date: 20111010
  Serious: Yes (Other)
  Sender: FDA-Public Use
  Company Number: US-GILEAD-2011-0035884

PATIENT
  Sex: Female

DRUGS (2)
  1. LETAIRIS [Suspect]
     Indication: PULMONARY HYPERTENSION
     Route: 048
     Dates: start: 20100909, end: 20110128
  2. LETAIRIS [Suspect]
     Indication: SCLERODERMA

REACTIONS (3)
  - GASTRIC DISORDER [None]
  - INTESTINAL HAEMORRHAGE [None]
  - NASAL CONGESTION [None]
